FAERS Safety Report 4405777-7 (Version None)
Quarter: 2004Q3

REPORT INFORMATION
  Report Type: 
  Country: None (occurrence: None)
  Receive Date: 20040723
  Receipt Date: 20031209
  Transmission Date: 20050211
  Serious: No
  Sender: FDA-Public Use
  Company Number: US-GLAXOSMITHKLINE-A0442543A

PATIENT
  Age: 65 Year
  Sex: Male

DRUGS (14)
  1. AVANDIA [Suspect]
     Dosage: 8MG PER DAY
     Route: 048
     Dates: start: 20021201
  2. COREG [Concomitant]
  3. GLUCOPHAGE [Concomitant]
  4. GLIPIZIDE [Concomitant]
  5. CAPTOPRIL [Concomitant]
  6. SPIRONOLACTONE [Concomitant]
  7. LOPID [Concomitant]
  8. SYNTHROID [Concomitant]
  9. LIPITOR [Concomitant]
  10. SERZONE [Concomitant]
  11. LASIX [Concomitant]
  12. AMBIEN [Concomitant]
  13. GLUCOSAMINE [Concomitant]
  14. CHONDROITIN [Concomitant]

REACTIONS (1)
  - WEIGHT INCREASED [None]
